FAERS Safety Report 25636983 (Version 2)
Quarter: 2025Q3

REPORT INFORMATION
  Report Type: Spontaneous
  Country: US (occurrence: US)
  Receive Date: 20250804
  Receipt Date: 20250811
  Transmission Date: 20251020
  Serious: Yes (Hospitalization)
  Sender: ROCHE
  Company Number: US-ROCHE-10000353315

PATIENT
  Age: 47 Year
  Sex: Female

DRUGS (8)
  1. ATEZOLIZUMAB [Suspect]
     Active Substance: ATEZOLIZUMAB
     Indication: Bronchial carcinoma
     Route: 042
  2. ATEZOLIZUMAB [Suspect]
     Active Substance: ATEZOLIZUMAB
     Indication: Neuroendocrine carcinoma
  3. ATEZOLIZUMAB [Suspect]
     Active Substance: ATEZOLIZUMAB
     Indication: Metastases to central nervous system
  4. ATEZOLIZUMAB [Suspect]
     Active Substance: ATEZOLIZUMAB
     Indication: Endometrial cancer
  5. ATEZOLIZUMAB [Suspect]
     Active Substance: ATEZOLIZUMAB
     Indication: Metastases to eye
  6. CARBOPLATIN [Concomitant]
     Active Substance: CARBOPLATIN
  7. ETOPOSIDE [Concomitant]
     Active Substance: ETOPOSIDE
  8. PREDNISOLONE [Concomitant]
     Active Substance: PREDNISOLONE

REACTIONS (1)
  - Choroidal effusion [Recovered/Resolved]
